FAERS Safety Report 7411563-6 (Version None)
Quarter: 2011Q2

REPORT INFORMATION
  Report Type: 
  Country: None (occurrence: None)
  Receive Date: 20110413
  Receipt Date: 20100830
  Transmission Date: 20111010
  Serious: Yes (Other)
  Sender: FDA-Public Use
  Company Number: US-BRISTOL-MYERS SQUIBB COMPANY-15260425

PATIENT
  Sex: Female

DRUGS (4)
  1. VITAMIN D [Concomitant]
  2. ERBITUX [Suspect]
     Dates: start: 20100801
  3. POTASSIUM [Concomitant]
  4. IRON [Concomitant]

REACTIONS (3)
  - WEIGHT DECREASED [None]
  - SKIN DISCOLOURATION [None]
  - NAIL DISCOLOURATION [None]
